FAERS Safety Report 19256712 (Version 2)
Quarter: 2021Q2

REPORT INFORMATION
  Report Type: Spontaneous
  Country: US (occurrence: US)
  Receive Date: 20210514
  Receipt Date: 20210521
  Transmission Date: 20210717
  Serious: No
  Sender: FDA-Public Use
  Company Number: US-AMGEN-USASP2021073090

PATIENT
  Age: 61 Year
  Sex: Male

DRUGS (6)
  1. DESONIDE. [Concomitant]
     Active Substance: DESONIDE
  2. CEPHALEXIN [CEFALEXIN] [Concomitant]
     Active Substance: CEPHALEXIN
  3. IBUPROFEN. [Concomitant]
     Active Substance: IBUPROFEN
  4. CLOBETASOL [Concomitant]
     Active Substance: CLOBETASOL
  5. CALCIPOTRIENE. [Concomitant]
     Active Substance: CALCIPOTRIENE
  6. OTEZLA [Suspect]
     Active Substance: APREMILAST
     Indication: PSORIASIS
     Dosage: 30 MILLIGRAM, USE AS DIRECTED
     Route: 048
     Dates: start: 202104

REACTIONS (2)
  - Abdominal pain upper [Recovered/Resolved]
  - Headache [Recovered/Resolved]

NARRATIVE: CASE EVENT DATE: 202104
